FAERS Safety Report 7830413-7 (Version None)
Quarter: 2011Q4

REPORT INFORMATION
  Report Type: 
  Country: None (occurrence: None)
  Receive Date: 20111021
  Receipt Date: 20111020
  Transmission Date: 20120403
  Serious: Yes (Other)
  Sender: FDA-Public Use
  Company Number: IT-SANOFI-AVENTIS-2011SA068813

PATIENT
  Age: 81 Year
  Sex: Male

DRUGS (3)
  1. LASIX [Suspect]
     Route: 048
     Dates: start: 20100816, end: 20110815
  2. CORDARONE [Concomitant]
     Route: 048
  3. ALLOPURINOL [Concomitant]
     Route: 065

REACTIONS (2)
  - DEHYDRATION [None]
  - SYNCOPE [None]
